FAERS Safety Report 7898641-2 (Version None)
Quarter: 2011Q4

REPORT INFORMATION
  Report Type: 
  Country: None (occurrence: None)
  Receive Date: 20111107
  Receipt Date: 20111107
  Transmission Date: 20120403
  Serious: No
  Sender: FDA-Public Use
  Company Number: None

PATIENT
  Age: 60 Year
  Sex: Female
  Weight: 76.657 kg

DRUGS (2)
  1. CYMBALTA [Suspect]
     Indication: FIBROMYALGIA
     Dosage: 30 MG
     Route: 048
     Dates: start: 20111014, end: 20111104
  2. CYMBALTA [Suspect]
     Indication: MAJOR DEPRESSION
     Dosage: 30 MG
     Route: 048
     Dates: start: 20111014, end: 20111104

REACTIONS (6)
  - DRUG EFFECT DECREASED [None]
  - CELLULITIS [None]
  - INSOMNIA [None]
  - URTICARIA [None]
  - PRURITUS [None]
  - DISTURBANCE IN ATTENTION [None]
